FAERS Safety Report 12540160 (Version 1)
Quarter: 2016Q3

REPORT INFORMATION
  Report Type: Spontaneous
  Country: US (occurrence: US)
  Receive Date: 20160708
  Receipt Date: 20160708
  Transmission Date: 20161109
  Serious: Yes (Other)
  Sender: FDA-Public Use
  Company Number: US-PFIZER INC-2016326569

PATIENT
  Age: 81 Year
  Sex: Female
  Weight: 58 kg

DRUGS (3)
  1. LIPITOR [Suspect]
     Active Substance: ATORVASTATIN CALCIUM
     Dosage: 10 MG, UNK, ON THURSDAY NIGHTS
  2. MIRALAX [Concomitant]
     Active Substance: POLYETHYLENE GLYCOL 3350
     Indication: CONSTIPATION
     Dosage: UNK
  3. BISOPROLOL [Concomitant]
     Active Substance: BISOPROLOL
     Dosage: 10 MG, UNK, ONCE PER WEEK
     Dates: start: 2001

REACTIONS (2)
  - Pain [Not Recovered/Not Resolved]
  - Diabetes mellitus [Recovering/Resolving]
